FAERS Safety Report 6241336-1 (Version None)
Quarter: 2009Q2

REPORT INFORMATION
  Report Type: 
  Country: None (occurrence: None)
  Receive Date: 20090619
  Receipt Date: 20090619
  Transmission Date: 20091009
  Serious: No
  Sender: FDA-Public Use
  Company Number: None

PATIENT
  Age: 33 Year
  Sex: Male
  Weight: 79.3795 kg

DRUGS (1)
  1. ZICAM GEL SWABS MATRIXX INITIATIVES, LLC [Suspect]
     Indication: NASOPHARYNGITIS
     Dosage: 1 SWAB TWICE DAILY NASAL
     Route: 045

REACTIONS (1)
  - ANOSMIA [None]
